FAERS Safety Report 14528452 (Version 2)
Quarter: 2018Q2

REPORT INFORMATION
  Report Type: Spontaneous
  Country: US (occurrence: US)
  Receive Date: 20180214
  Receipt Date: 20180419
  Transmission Date: 20180711
  Serious: Yes (Life-Threatening, Hospitalization, Other)
  Sender: FDA-Public Use
  Company Number: US-009507513-1802USA004227

PATIENT
  Age: 16 Year
  Sex: Female
  Weight: 69 kg

DRUGS (4)
  1. VINCRISTINE [Concomitant]
     Active Substance: VINCRISTINE
     Indication: B PRECURSOR TYPE ACUTE LEUKAEMIA
     Dosage: 1 MG, ONCE
     Route: 042
     Dates: start: 20170327, end: 20171201
  2. RUXOLITINIB [Suspect]
     Active Substance: RUXOLITINIB
     Indication: B PRECURSOR TYPE ACUTE LEUKAEMIA
     Dosage: 70 MG, QD
     Route: 048
     Dates: start: 20170313, end: 20171208
  3. POSACONAZOLE [Suspect]
     Active Substance: POSACONAZOLE
     Indication: LUNG INFECTION
     Dosage: 300 MG, QD
     Route: 048
     Dates: start: 20171013, end: 20171211
  4. METHOTREXATE. [Concomitant]
     Active Substance: METHOTREXATE
     Indication: B PRECURSOR TYPE ACUTE LEUKAEMIA
     Dosage: 180 MG, ONCE
     Route: 042
     Dates: start: 20170515, end: 20171106

REACTIONS (12)
  - Pancytopenia [Unknown]
  - Thrombocytopenia [Unknown]
  - Venoocclusive liver disease [Recovered/Resolved]
  - Lung infection [Recovered/Resolved]
  - Sinusitis fungal [Not Recovered/Not Resolved]
  - Cellulitis [Recovered/Resolved]
  - Hyperglycaemia [Unknown]
  - Respiratory failure [Recovered/Resolved]
  - Bacteraemia [Recovered/Resolved]
  - Scratch [Unknown]
  - Fall [Unknown]
  - Herpes simplex [Unknown]

NARRATIVE: CASE EVENT DATE: 2017
